FAERS Safety Report 17123924 (Version 2)
Quarter: 2020Q2

REPORT INFORMATION
  Report Type: Report from Study
  Country: US (occurrence: US)
  Receive Date: 20191206
  Receipt Date: 20200404
  Transmission Date: 20200713
  Serious: No
  Sender: FDA-Public Use
  Company Number: NVSC2019US061253

PATIENT
  Sex: Female

DRUGS (1)
  1. COSENTYX [Suspect]
     Active Substance: SECUKINUMAB
     Indication: ANKYLOSING SPONDYLITIS
     Dosage: 300 MG
     Route: 065
     Dates: start: 20190214

REACTIONS (4)
  - Nasopharyngitis [Unknown]
  - Nerve compression [Unknown]
  - Back pain [Unknown]
  - Musculoskeletal discomfort [Unknown]
